FAERS Safety Report 9861785 (Version 1)
Quarter: 2014Q1

REPORT INFORMATION
  Report Type: Spontaneous
  Country: US (occurrence: US)
  Receive Date: 20140203
  Receipt Date: 20140203
  Transmission Date: 20141002
  Serious: No
  Sender: FDA-Public Use
  Company Number: US-BAYER-2014-017000

PATIENT
  Sex: Female

DRUGS (1)
  1. BETASERON [Suspect]
     Indication: MULTIPLE SCLEROSIS
     Dosage: 0.25 MG, UNK

REACTIONS (11)
  - Vision blurred [None]
  - Muscle spasms [None]
  - Abdominal rigidity [None]
  - Diarrhoea [None]
  - Dizziness [None]
  - Pruritus [None]
  - Hyperhidrosis [None]
  - Depression [None]
  - Decreased interest [None]
  - Musculoskeletal stiffness [None]
  - Fatigue [None]
